FAERS Safety Report 7327402-8 (Version None)
Quarter: 2011Q1

REPORT INFORMATION
  Report Type: 
  Country: None (occurrence: None)
  Receive Date: 20110303
  Receipt Date: 20110224
  Transmission Date: 20110831
  Serious: Yes (Hospitalization)
  Sender: FDA-Public Use
  Company Number: PL-BAYER-2011-017916

PATIENT
  Sex: Male
  Weight: 90 kg

DRUGS (1)
  1. ULTRAVIST 150 [Suspect]
     Indication: PRODUCT USED FOR UNKNOWN INDICATION
     Dosage: 200 ML, UNK
     Route: 042
     Dates: start: 20110223, end: 20110223

REACTIONS (3)
  - SKIN REACTION [None]
  - ANAPHYLACTIC SHOCK [None]
  - ANGIOEDEMA [None]
